FAERS Safety Report 13290462 (Version 1)
Quarter: 2017Q1

REPORT INFORMATION
  Report Type: Spontaneous
  Country: PL (occurrence: PL)
  Receive Date: 20170302
  Receipt Date: 20170302
  Transmission Date: 20170428
  Serious: Yes (Disabling)
  Sender: FDA-Public Use
  Company Number: PL-B.I. PHARMACEUTICALS,INC./RIDGEFIELD-2017-BI-010656

PATIENT
  Age: 78 Year
  Sex: Female
  Weight: 78 kg

DRUGS (4)
  1. POLFENON [Concomitant]
     Active Substance: PROPAFENONE HYDROCHLORIDE
     Indication: ATRIAL FIBRILLATION
     Route: 065
     Dates: start: 201604
  2. PRADAXA [Suspect]
     Active Substance: DABIGATRAN ETEXILATE MESYLATE
     Indication: ATRIAL FIBRILLATION
     Route: 048
     Dates: start: 20160425, end: 20170217
  3. KARBICOMBI [Concomitant]
     Indication: HYPERTENSION
     Dosage: UNIT DOSE: 16/12.5 MILLIGRAM
     Route: 065
     Dates: start: 201303
  4. BISOHEXAL [Concomitant]
     Active Substance: BISOPROLOL FUMARATE
     Indication: HYPERTENSION
     Route: 048
     Dates: start: 200504

REACTIONS (2)
  - Productive cough [Recovering/Resolving]
  - Rhinorrhoea [Recovering/Resolving]

NARRATIVE: CASE EVENT DATE: 201605
